FAERS Safety Report 4959819-0 (Version None)
Quarter: 2006Q1

REPORT INFORMATION
  Report Type: 
  Country: None (occurrence: None)
  Receive Date: 20060327
  Receipt Date: 20060315
  Transmission Date: 20060701
  Serious: Yes (Other)
  Sender: FDA-Public Use
  Company Number: 2006BH005585

PATIENT
  Sex: 0

DRUGS (2)
  1. LIDOCAINE [Suspect]
     Indication: ACUTE MYOCARDIAL INFARCTION
     Dosage: SEE IMAGE
     Route: 040
  2. LIDOCAINE [Suspect]
     Indication: ACUTE MYOCARDIAL INFARCTION
     Dosage: SEE IMAGE
     Route: 040

REACTIONS (2)
  - DRUG TOXICITY [None]
  - LOSS OF CONSCIOUSNESS [None]
